FAERS Safety Report 23762292 (Version 1)
Quarter: 2024Q2

REPORT INFORMATION
  Report Type: Spontaneous
  Country: US (occurrence: US)
  Receive Date: 20240419
  Receipt Date: 20240419
  Transmission Date: 20240716
  Serious: Yes (Death)
  Sender: FDA-Public Use
  Company Number: US-Stemline Therapeutics, Inc.-2024ST000996

PATIENT
  Age: 68 Year
  Sex: Female

DRUGS (1)
  1. ORSERDU [Suspect]
     Active Substance: ELACESTRANT
     Indication: Product used for unknown indication
     Route: 048
     Dates: start: 20240201

REACTIONS (7)
  - Death [Fatal]
  - Tremor [Unknown]
  - Illness [Unknown]
  - Peripheral swelling [Unknown]
  - Abdominal distension [Unknown]
  - Dyspepsia [Unknown]
  - Asthenia [Unknown]

NARRATIVE: CASE EVENT DATE: 20240303
